FAERS Safety Report 13770567 (Version 2)
Quarter: 2017Q3

REPORT INFORMATION
  Report Type: Spontaneous
  Country: PT (occurrence: PT)
  Receive Date: 20170719
  Receipt Date: 20170824
  Transmission Date: 20171127
  Serious: Yes (Death)
  Sender: FDA-Public Use
  Company Number: PT-BAYER-2017-130252

PATIENT
  Age: 77 Year
  Sex: Male

DRUGS (3)
  1. GENTAMYCIN [Concomitant]
     Active Substance: GENTAMICIN
     Indication: ENDOPHTHALMITIS
     Route: 061
  2. VANCOMYCIN [Concomitant]
     Active Substance: VANCOMYCIN
     Indication: ENDOPHTHALMITIS
     Route: 061
  3. CIPRO [Suspect]
     Active Substance: CIPROFLOXACIN HYDROCHLORIDE
     Indication: SERRATIA SEPSIS

REACTIONS (2)
  - Endophthalmitis [Fatal]
  - General physical health deterioration [Fatal]
